FAERS Safety Report 9321319 (Version 1)
Quarter: 2013Q2

REPORT INFORMATION
  Report Type: Report from Study
  Country: US (occurrence: US)
  Receive Date: 20130531
  Receipt Date: 20130531
  Transmission Date: 20140414
  Serious: Yes (Other)
  Sender: FDA-Public Use
  Company Number: US-ASTELLAS-2013US001495

PATIENT
  Age: 57 Year
  Sex: Male

DRUGS (2)
  1. ERLOTINIB TABLET [Suspect]
     Indication: LUNG CARCINOMA CELL TYPE UNSPECIFIED STAGE 0
     Dosage: 100 MG, UID/QD
     Route: 048
     Dates: start: 20130121
  2. REGLAN /00041901/ [Suspect]
     Indication: PRODUCT USED FOR UNKNOWN INDICATION
     Dosage: UNK
     Route: 065

REACTIONS (21)
  - Incorrect dose administered [Unknown]
  - Tardive dyskinesia [Unknown]
  - Dysarthria [Unknown]
  - Renal failure [Unknown]
  - Neoplasm recurrence [Unknown]
  - Micturition disorder [Unknown]
  - Dysphonia [Unknown]
  - Wheezing [Unknown]
  - Hyperhidrosis [Unknown]
  - Feeling cold [Unknown]
  - Dizziness [Unknown]
  - Tremor [Unknown]
  - Local swelling [Unknown]
  - Sinusitis [Unknown]
  - Dyspnoea [Unknown]
  - Cough [Unknown]
  - Fatigue [Unknown]
  - Vision blurred [Unknown]
  - Diplopia [Unknown]
  - Headache [Unknown]
  - Nausea [Unknown]
